FAERS Safety Report 5895856-X (Version None)
Quarter: 2008Q3

REPORT INFORMATION
  Report Type: 
  Country: None (occurrence: None)
  Receive Date: 20080822
  Receipt Date: 20080520
  Transmission Date: 20090109
  Serious: Yes (Death)
  Sender: FDA-Public Use
  Company Number: T200800862

PATIENT
  Age: 50 Year
  Sex: Female

DRUGS (4)
  1. METHADOSE [Suspect]
     Indication: PAIN
  2. OXYCODONE HCL [Suspect]
     Indication: PAIN
  3. MORPHINE [Suspect]
     Indication: PAIN
  4. ACTIQ [Suspect]
     Indication: PAIN
     Dosage: 600 UG, BUCCAL ; 800 UG, BUCCAL
     Route: 002

REACTIONS (1)
  - MULTIPLE DRUG OVERDOSE [None]
